FAERS Safety Report 26181783 (Version 1)
Quarter: 2025Q4

REPORT INFORMATION
  Report Type: Report from Study
  Country: US (occurrence: US)
  Receive Date: 20251221
  Receipt Date: 20251221
  Transmission Date: 20260118
  Serious: Yes (Other)
  Sender: ABBVIE
  Company Number: US-ABBVIE-6590583

PATIENT
  Age: 41 Year
  Sex: Female

DRUGS (1)
  1. RINVOQ [Suspect]
     Active Substance: UPADACITINIB
     Indication: Colitis ulcerative
     Route: 048
     Dates: start: 20230721

REACTIONS (6)
  - Sepsis [Unknown]
  - Blood cholesterol increased [Recovered/Resolved]
  - Weight decreased [Recovering/Resolving]
  - Hepatic enzyme abnormal [Recovering/Resolving]
  - Bronchitis viral [Recovering/Resolving]
  - Wheezing [Unknown]

NARRATIVE: CASE EVENT DATE: 20250101
